FAERS Safety Report 16361463 (Version 6)
Quarter: 2020Q2

REPORT INFORMATION
  Report Type: Spontaneous
  Country: US (occurrence: US)
  Receive Date: 20190528
  Receipt Date: 20200428
  Transmission Date: 20200713
  Serious: No
  Sender: FDA-Public Use
  Company Number: US-PFIZER INC-2018342794

PATIENT
  Age: 80 Year
  Sex: Female
  Weight: 68.03 kg

DRUGS (4)
  1. REVATIO [Suspect]
     Active Substance: SILDENAFIL CITRATE
     Dosage: 60 MG, 3X/DAY
  2. REVATIO [Suspect]
     Active Substance: SILDENAFIL CITRATE
     Indication: HYPERTENSION
     Dosage: 40 MG, THREE TIMES A DAY
     Route: 048
     Dates: start: 201606
  3. REVATIO [Suspect]
     Active Substance: SILDENAFIL CITRATE
     Dosage: 80 MG, 3X/DAY (20 MG TABLET, 4 TABLETS BY MOUTH 3 TIMES PER DAY/4 TABLETS OF 20MG TABLET)
     Route: 048
  4. REVATIO [Suspect]
     Active Substance: SILDENAFIL CITRATE
     Indication: PULMONARY ARTERIAL HYPERTENSION
     Dosage: 60 MG, 3X/DAY
     Route: 048

REACTIONS (4)
  - Prescribed overdose [Unknown]
  - Anxiety [Not Recovered/Not Resolved]
  - Dyspnoea [Unknown]
  - Herpes zoster [Unknown]

NARRATIVE: CASE EVENT DATE: 201606
